FAERS Safety Report 12976955 (Version 2)
Quarter: 2016Q4

REPORT INFORMATION
  Report Type: Report from Study
  Country: IE (occurrence: IE)
  Receive Date: 20161128
  Receipt Date: 20161208
  Transmission Date: 20170207
  Serious: Yes (Disabling)
  Sender: FDA-Public Use
  Company Number: PHFR2016IE009352

PATIENT
  Age: 73 Year
  Sex: Male

DRUGS (7)
  1. XATRAL [Concomitant]
     Active Substance: ALFUZOSIN
     Indication: PRODUCT USED FOR UNKNOWN INDICATION
     Dosage: 10 MG, QD
     Route: 048
     Dates: start: 20121015
  2. RAMIPRIL. [Concomitant]
     Active Substance: RAMIPRIL
     Indication: PRODUCT USED FOR UNKNOWN INDICATION
     Dosage: 5 MG, QD
     Route: 048
     Dates: start: 20160506
  3. VIDISIC [Concomitant]
     Indication: PRODUCT USED FOR UNKNOWN INDICATION
     Dosage: UNK (O.2.T)
     Route: 061
     Dates: start: 20160506
  4. LOSIL [Concomitant]
     Indication: PRODUCT USED FOR UNKNOWN INDICATION
     Dosage: 10 MG, QD
     Route: 048
     Dates: start: 20061214
  5. ULTIBRO BREEZHALER [Suspect]
     Active Substance: GLYCOPYRRONIUM\INDACATEROL
     Indication: CHRONIC OBSTRUCTIVE PULMONARY DISEASE
     Dosage: 1 DF, UNK
     Route: 055
     Dates: start: 20160106
  6. BETMIGA [Concomitant]
     Active Substance: MIRABEGRON
     Indication: PRODUCT USED FOR UNKNOWN INDICATION
     Dosage: 50 UG, QD
     Route: 048
     Dates: start: 20160506
  7. ASPIRIN NUSEALS [Concomitant]
     Indication: PRODUCT USED FOR UNKNOWN INDICATION
     Dosage: 75 MG, QD
     Route: 048
     Dates: start: 20150123

REACTIONS (6)
  - Dysphonia [Unknown]
  - Incontinence [Unknown]
  - Dementia [Unknown]
  - Productive cough [Unknown]
  - Confusional state [Unknown]
  - Hypertension [Unknown]

NARRATIVE: CASE EVENT DATE: 20160307
